FAERS Safety Report 4879680-2 (Version None)
Quarter: 2006Q1

REPORT INFORMATION
  Report Type: 
  Country: None (occurrence: None)
  Receive Date: 20060113
  Receipt Date: 20051221
  Transmission Date: 20060701
  Serious: Yes (Hospitalization)
  Sender: FDA-Public Use
  Company Number: US-BRISTOL-MYERS SQUIBB COMPANY-13226162

PATIENT
  Age: 53 Year
  Sex: Male

DRUGS (6)
  1. ABATACEPT [Suspect]
     Indication: RHEUMATOID ARTHRITIS
     Route: 042
     Dates: start: 20040401
  2. METHOTREXATE [Concomitant]
     Route: 048
     Dates: start: 20020416, end: 20051206
  3. PREDNISONE [Concomitant]
     Dosage: INTERRPUTED ON 15-DEC-2005 AND RESUMED ON 24-DEC-2005
     Route: 048
     Dates: start: 20020727
  4. VIOXX [Concomitant]
     Route: 048
     Dates: start: 20050831, end: 20051215
  5. CALAN [Concomitant]
     Route: 048
     Dates: start: 20051224
  6. LEVOXYL [Concomitant]
     Route: 048
     Dates: start: 20051224

REACTIONS (3)
  - CHOLECYSTITIS [None]
  - CHOLELITHIASIS [None]
  - PANCREATITIS [None]
